FAERS Safety Report 22145115 (Version 1)
Quarter: 2023Q1

REPORT INFORMATION
  Report Type: Spontaneous
  Country: ES (occurrence: ES)
  Receive Date: 20230328
  Receipt Date: 20230328
  Transmission Date: 20230418
  Serious: Yes (Hospitalization)
  Sender: FDA-Public Use
  Company Number: None

PATIENT
  Age: 58 Year
  Sex: Male

DRUGS (2)
  1. CARBOPLATIN [Interacting]
     Active Substance: CARBOPLATIN
     Indication: Lung cancer metastatic
     Dosage: 805.5 MILLIGRAMS (4.8MG/TOTAL) 80% REDUCTION OF THE TOTAL CYCLE 1 +1 LAST CYCLE 2 +1 01/29/2023/ CYC
     Route: 065
     Dates: start: 20230105, end: 20230216
  2. PEMETREXED [Interacting]
     Active Substance: PEMETREXED
     Indication: Lung cancer metastatic
     Dosage: 922.5 MILLIGRAMS (450MG/M2) 80% REDUCTION OF THE TOTAL CYCLE 1 +1 LAST CYCLE 2 +1 01/29/2023, CYCLE
     Route: 065
     Dates: start: 20230105, end: 20230216

REACTIONS (3)
  - Pancytopenia [Not Recovered/Not Resolved]
  - Pyrexia [Recovering/Resolving]
  - Drug interaction [Unknown]

NARRATIVE: CASE EVENT DATE: 20230224
